FAERS Safety Report 6741148-6 (Version None)
Quarter: 2010Q2

REPORT INFORMATION
  Report Type: 
  Country: None (occurrence: None)
  Receive Date: 20100526
  Receipt Date: 20100517
  Transmission Date: 20101027
  Serious: Yes (Hospitalization)
  Sender: FDA-Public Use
  Company Number: DE-ASTRAZENECA-2010SE20386

PATIENT
  Age: 688 Month
  Sex: Male
  Weight: 77 kg

DRUGS (1)
  1. SEROQUEL [Suspect]
     Route: 048
     Dates: start: 20090519, end: 20100407

REACTIONS (14)
  - ABDOMINAL PAIN UPPER [None]
  - ABNORMAL SENSATION IN EYE [None]
  - DIARRHOEA [None]
  - EPISTAXIS [None]
  - ERECTILE DYSFUNCTION [None]
  - GASTRIC PH DECREASED [None]
  - HEADACHE [None]
  - MIOSIS [None]
  - NAUSEA [None]
  - REGURGITATION [None]
  - SEBORRHOEA [None]
  - SKIN DISORDER [None]
  - VISUAL ACUITY REDUCED [None]
  - VOMITING [None]
